FAERS Safety Report 6119788-7 (Version None)
Quarter: 2009Q1

REPORT INFORMATION
  Report Type: 
  Country: None (occurrence: None)
  Receive Date: 20090316
  Receipt Date: 20090217
  Transmission Date: 20090719
  Serious: Yes (Other)
  Sender: FDA-Public Use
  Company Number: TR-PFIZER INC-2009180725

PATIENT

DRUGS (1)
  1. VARENICLINE TARTRATE [Suspect]
     Route: 048

REACTIONS (1)
  - SKIN EXFOLIATION [None]
